FAERS Safety Report 7083544-6 (Version None)
Quarter: 2010Q4

REPORT INFORMATION
  Report Type: 
  Country: None (occurrence: None)
  Receive Date: 20101104
  Receipt Date: 20101027
  Transmission Date: 20110411
  Serious: Yes (Other)
  Sender: FDA-Public Use
  Company Number: JP-ROCHE-726799

PATIENT
  Sex: Male
  Weight: 67 kg

DRUGS (11)
  1. AVASTIN [Suspect]
     Indication: LUNG ADENOCARCINOMA
     Route: 041
     Dates: start: 20100519, end: 20100726
  2. AVASTIN [Suspect]
     Route: 041
     Dates: start: 20100817, end: 20100817
  3. CISPLATIN [Concomitant]
     Route: 041
     Dates: start: 20100519, end: 20100817
  4. ALIMTA [Concomitant]
     Route: 041
     Dates: start: 20100519, end: 20100817
  5. EMEND [Concomitant]
     Route: 048
     Dates: start: 20100519, end: 20100817
  6. NAUZELIN [Concomitant]
     Dosage: DOSE FORM: PERORAL AGENT
     Route: 048
     Dates: start: 20100519, end: 20100817
  7. WYPAX [Concomitant]
     Route: 048
     Dates: start: 20100519, end: 20100817
  8. HYDROXOCOBALAMIN ACETATE [Concomitant]
     Dosage: DRUG NAME: FRESMIN-S(HYDROXOCOBALAMINE ACETATE)
     Route: 030
     Dates: start: 20100512, end: 20100907
  9. LENDORMIN [Concomitant]
     Route: 048
     Dates: start: 20100504
  10. TAMSULOSIN HCL [Concomitant]
     Route: 048
     Dates: start: 20100504
  11. NORVASC [Concomitant]
     Route: 048
     Dates: start: 20100619

REACTIONS (2)
  - DIVERTICULITIS [None]
  - HYPERTENSION [None]
